FAERS Safety Report 16419591 (Version 1)
Quarter: 2019Q2

REPORT INFORMATION
  Report Type: Report from Study
  Country: US (occurrence: US)
  Receive Date: 20190612
  Receipt Date: 20190612
  Transmission Date: 20190711
  Serious: Yes (Other)
  Sender: FDA-Public Use
  Company Number: US-EMD SERONO-9096832

PATIENT
  Sex: Female

DRUGS (1)
  1. REBIF [Suspect]
     Active Substance: INTERFERON BETA-1A
     Indication: PRODUCT USED FOR UNKNOWN INDICATION
     Route: 058
     Dates: start: 20180102

REACTIONS (5)
  - Memory impairment [Unknown]
  - Surgery [Unknown]
  - Injection site indentation [Unknown]
  - Injection site scar [Unknown]
  - Asthenia [Unknown]

NARRATIVE: CASE EVENT DATE: 2019
